FAERS Safety Report 4439331-8 (Version None)
Quarter: 2004Q3

REPORT INFORMATION
  Report Type: 
  Country: None (occurrence: None)
  Receive Date: 20040728
  Receipt Date: 20040423
  Transmission Date: 20050211
  Serious: No
  Sender: FDA-Public Use
  Company Number: USA040465866

PATIENT
  Age: 48 Year
  Sex: Female

DRUGS (2)
  1. STRATTERA [Suspect]
     Indication: ATTENTION DEFICIT/HYPERACTIVITY DISORDER
     Dosage: 80 MG DAY
     Dates: start: 20040412
  2. CLONAZEPAM [Concomitant]

REACTIONS (7)
  - CARDIOVASCULAR DISORDER [None]
  - CONSTIPATION [None]
  - DEPRESSION [None]
  - IRRITABILITY [None]
  - MANIA [None]
  - TINNITUS [None]
  - URINARY INCONTINENCE [None]
